FAERS Safety Report 5895851-0 (Version None)
Quarter: 2008Q3

REPORT INFORMATION
  Report Type: 
  Country: None (occurrence: None)
  Receive Date: 20080924
  Receipt Date: 20080915
  Transmission Date: 20090109
  Serious: Yes (Hospitalization, Other)
  Sender: FDA-Public Use
  Company Number: US-JNJFOC-20080904201

PATIENT
  Sex: Male

DRUGS (8)
  1. LEVAQUIN [Suspect]
     Route: 048
  2. LEVAQUIN [Suspect]
     Route: 048
  3. LEVAQUIN [Suspect]
     Indication: DRUG USE FOR UNKNOWN INDICATION
     Route: 048
  4. BMS 663513 [Suspect]
     Indication: MALIGNANT MELANOMA
     Route: 042
  5. NEURONTIN [Concomitant]
     Route: 065
  6. GABAPENTIN [Concomitant]
     Route: 065
  7. PROTONIX [Concomitant]
     Route: 065
  8. ALLOPURINOL [Concomitant]
     Route: 065

REACTIONS (6)
  - ERYTHEMA MULTIFORME [None]
  - HEPATIC FUNCTION ABNORMAL [None]
  - HERPES SIMPLEX [None]
  - HYPERSENSITIVITY [None]
  - NEUTROPENIA [None]
  - PYREXIA [None]
